FAERS Safety Report 14369443 (Version 2)
Quarter: 2018Q1

REPORT INFORMATION
  Report Type: Spontaneous
  Country: US (occurrence: US)
  Receive Date: 20180110
  Receipt Date: 20180116
  Transmission Date: 20180509
  Serious: Yes (Hospitalization)
  Sender: FDA-Public Use
  Company Number: US-VIFOR (INTERNATIONAL) INC.-VIT-2017-14480

PATIENT
  Age: 76 Year
  Sex: Male

DRUGS (16)
  1. VELTASSA [Suspect]
     Active Substance: PATIROMER
     Indication: HYPERKALAEMIA
     Route: 048
     Dates: start: 20160426
  2. HYDRALAZINE HYDROCHLORIDE. [Concomitant]
     Active Substance: HYDRALAZINE HYDROCHLORIDE
  3. SODIUM POLYSTYRENE SULFONATE. [Concomitant]
     Active Substance: SODIUM POLYSTYRENE SULFONATE
  4. FERROUS SULFATE. [Concomitant]
     Active Substance: FERROUS SULFATE
  5. HUMALOG [Concomitant]
     Active Substance: INSULIN LISPRO
  6. AMLODIPINE BESILATE [Concomitant]
     Active Substance: AMLODIPINE BESYLATE
  7. FUROSEMIDE. [Concomitant]
     Active Substance: FUROSEMIDE
  8. IRON [Concomitant]
     Active Substance: IRON
  9. METRONIDAZOLE. [Concomitant]
     Active Substance: METRONIDAZOLE
  10. PROBIOTIC [Concomitant]
     Active Substance: PROBIOTICS NOS
  11. COLECALCIFEROL [Concomitant]
     Active Substance: CHOLECALCIFEROL
  12. ACETYLSALICYLIC ACID [Concomitant]
     Active Substance: ASPIRIN
  13. LACTULOSE. [Concomitant]
     Active Substance: LACTULOSE
  14. LANTUS [Concomitant]
     Active Substance: INSULIN GLARGINE
  15. LISINOPRIL. [Concomitant]
     Active Substance: LISINOPRIL
  16. METOPROLOL TARTRATE. [Concomitant]
     Active Substance: METOPROLOL TARTRATE

REACTIONS (2)
  - Constipation [Unknown]
  - Renal failure [Unknown]

NARRATIVE: CASE EVENT DATE: 201712
